FAERS Safety Report 10362487 (Version 3)
Quarter: 2014Q3

REPORT INFORMATION
  Report Type: Report from Study
  Country: AU (occurrence: AU)
  Receive Date: 20140805
  Receipt Date: 20140904
  Transmission Date: 20150326
  Serious: Yes (Hospitalization, Other)
  Sender: FDA-Public Use
  Company Number: PHHY2014AU028267

PATIENT
  Age: 38 Year
  Sex: Male

DRUGS (7)
  1. DIAZEPAM. [Concomitant]
     Active Substance: DIAZEPAM
     Indication: ANXIETY
     Dosage: 5 MG, BID
     Route: 048
  2. CLOZARIL [Suspect]
     Active Substance: CLOZAPINE
     Indication: SCHIZOPHRENIA
     Dosage: 175 MG
     Route: 048
     Dates: start: 20030106
  3. ATENOLOL. [Concomitant]
     Active Substance: ATENOLOL
     Indication: BLOOD PRESSURE INCREASED
     Dosage: 50 G, UNK
     Route: 048
  4. CLOZARIL [Suspect]
     Active Substance: CLOZAPINE
     Dates: end: 20140730
  5. SERTRALINE [Concomitant]
     Active Substance: SERTRALINE HYDROCHLORIDE
     Indication: AFFECTIVE DISORDER
     Dosage: 150 MG, UNK
     Route: 048
  6. CLOZARIL [Suspect]
     Active Substance: CLOZAPINE
     Dosage: 300 MG, UNK
     Route: 048
     Dates: start: 20100831
  7. PANTOPRAZOLE [Concomitant]
     Active Substance: PANTOPRAZOLE SODIUM
     Indication: RENAL DISORDER
     Dosage: 40 MG, UNK
     Route: 048

REACTIONS (9)
  - Pruritus [Unknown]
  - Nausea [Unknown]
  - Hepatic encephalopathy [Recovered/Resolved]
  - Liver disorder [Unknown]
  - Pneumonia aspiration [Unknown]
  - Vomiting [Unknown]
  - Faeces discoloured [Unknown]
  - Jaundice [Unknown]
  - Malaise [Unknown]

NARRATIVE: CASE EVENT DATE: 20140215
